FAERS Safety Report 25636992 (Version 1)
Quarter: 2025Q3

REPORT INFORMATION
  Report Type: Spontaneous
  Country: EU (occurrence: EU)
  Receive Date: 20250804
  Receipt Date: 20250804
  Transmission Date: 20251020
  Serious: Yes (Other)
  Sender: ROCHE
  Company Number: None

PATIENT
  Age: 54 Year
  Sex: Female
  Weight: 74.5 kg

DRUGS (20)
  1. VALGANCICLOVIR HYDROCHLORIDE [Suspect]
     Active Substance: VALGANCICLOVIR HYDROCHLORIDE
     Indication: Antifungal prophylaxis
     Route: 048
     Dates: start: 20241016, end: 20241030
  2. VALGANCICLOVIR HYDROCHLORIDE [Suspect]
     Active Substance: VALGANCICLOVIR HYDROCHLORIDE
     Indication: Cytomegalovirus infection
     Route: 048
     Dates: start: 20241030, end: 20250120
  3. VALGANCICLOVIR HYDROCHLORIDE [Suspect]
     Active Substance: VALGANCICLOVIR HYDROCHLORIDE
     Route: 048
     Dates: start: 20250120, end: 20250216
  4. VALGANCICLOVIR HYDROCHLORIDE [Suspect]
     Active Substance: VALGANCICLOVIR HYDROCHLORIDE
     Route: 048
     Dates: start: 20250216, end: 20250531
  5. CELLCEPT [Concomitant]
     Active Substance: MYCOPHENOLATE MOFETIL
     Dosage: CELLCEPT 500 MG: 750 MG, 1-0-1
     Route: 065
  6. CELLCEPT [Concomitant]
     Active Substance: MYCOPHENOLATE MOFETIL
     Dosage: CELLCEPT 1 G TWICE DAILY
     Route: 065
  7. PROGRAF [Concomitant]
     Active Substance: TACROLIMUS
     Dosage: PROGRAF 1MG: 1.5 MG, 1-0-1 (TARGET 8-10)
     Route: 065
  8. PREDNISONE [Concomitant]
     Active Substance: PREDNISONE
     Dosage: PREDNISONE 5 MG TABLET: 1.5 TABLETS 1-0-0
     Route: 065
  9. SULFAMETHOXAZOLE\TRIMETHOPRIM [Concomitant]
     Active Substance: SULFAMETHOXAZOLE\TRIMETHOPRIM
     Route: 065
  10. FERROUS SULFATE [Concomitant]
     Active Substance: FERROUS SULFATE
     Dosage: FERROUS SULFATE 247.25 MG (IRON 80 MG): 1-0-0.
     Route: 065
  11. CHOLECALCIFEROL [Concomitant]
     Active Substance: CHOLECALCIFEROL
     Dosage: CHOLECALCIFEROL 50,000 IU/2 ML ORAL SOLUTION: 1 AMPOULE/MONTH
     Route: 048
  12. PANTOPRAZOLE [Concomitant]
     Active Substance: PANTOPRAZOLE
     Dosage: PANTOPRAZOLE 40 MG GASTRO-RESISTANT TABLET: 0-0-1.
     Route: 065
  13. LIDOCAINE [Concomitant]
     Active Substance: LIDOCAINE
     Route: 065
  14. UMULINE [Concomitant]
     Active Substance: INSULIN HUMAN
     Dosage: UMULINE NPH 100 IU/ML SUSP INJ FL - SUBCUTANEOUS ROUTE: 10 IU, 1-0-0.
     Route: 058
  15. METFORMIN HYDROCHLORIDE [Concomitant]
     Active Substance: METFORMIN HYDROCHLORIDE
     Dosage: METFORMINE 500MG: 1 TABLET MORNING AND EVENING PER DAY.
     Route: 065
  16. MAGNESIUM [Concomitant]
     Active Substance: MAGNESIUM
     Route: 048
  17. CALCIUM PHOSPHATE, DIBASIC, ANHYDROUS\MAGNESIUM GLYCEROPHOSPHATE\PHOSP [Concomitant]
     Active Substance: CALCIUM PHOSPHATE, DIBASIC, ANHYDROUS\MAGNESIUM GLYCEROPHOSPHATE\PHOSPHORIC ACID\SODIUM PHOSPHATE, D
     Route: 065
  18. CALCIUM [Concomitant]
     Active Substance: CALCIUM
     Dosage: CALCIUM ELEMENT 500 MG POWDER FOR ORAL SUSPENSION: 2 SACHETS, 1-0-0
     Route: 065
  19. ACETAMINOPHEN [Concomitant]
     Active Substance: ACETAMINOPHEN
     Dosage: PARACETAMOL 500 MG CAPSULE: 2 CAPSULES, 4 TIMES/DAY AT 6-HOUR INTERVALS
     Route: 065
  20. RACECADOTRIL [Concomitant]
     Active Substance: RACECADOTRIL
     Dosage: 1 CAPSULE X 3 PER DAY IF DIARRHEA
     Route: 065

REACTIONS (3)
  - Leukopenia [Recovering/Resolving]
  - Neutropenia [Recovering/Resolving]
  - Off label use [Unknown]

NARRATIVE: CASE EVENT DATE: 20241016
